FAERS Safety Report 10750595 (Version 1)
Quarter: 2015Q1

REPORT INFORMATION
  Report Type: Spontaneous
  Country: US (occurrence: None)
  Receive Date: 20150126
  Receipt Date: 20150126
  Transmission Date: 20150721
  Serious: Yes (Other)
  Sender: FDA-Public Use
  Company Number: 9039997-2014-00050

PATIENT
  Age: 71 Year
  Sex: Male

DRUGS (5)
  1. ALENDRONATE [Concomitant]
     Active Substance: ALENDRONATE SODIUM
  2. LEVULAN KERASTICK [Suspect]
     Active Substance: AMINOLEVULINIC ACID HYDROCHLORIDE
     Indication: ACTINIC KERATOSIS
     Dosage: SINGLE
     Route: 061
     Dates: start: 20140318, end: 20140424
  3. CARVEDILOL. [Concomitant]
     Active Substance: CARVEDILOL
  4. CA+MG, VIT C, MVT, FISH OIL [Concomitant]
  5. SIMVASTATIN. [Concomitant]
     Active Substance: SIMVASTATIN

REACTIONS (2)
  - Contusion [None]
  - Platelet count decreased [None]

NARRATIVE: CASE EVENT DATE: 20140424
